FAERS Safety Report 23713055 (Version 1)
Quarter: 2024Q2

REPORT INFORMATION
  Report Type: Report from Study
  Country: EG (occurrence: EG)
  Receive Date: 20240405
  Receipt Date: 20240405
  Transmission Date: 20240716
  Serious: No
  Sender: FDA-Public Use
  Company Number: EG-SANDOZ-SDZ2024EG035736

PATIENT
  Sex: Male

DRUGS (2)
  1. OMNITROPE [Suspect]
     Active Substance: SOMATROPIN
     Indication: Growth hormone deficiency
     Dosage: 0.6 MG, QD
     Route: 058
     Dates: start: 20220828
  2. OMEGA 3 [Concomitant]
     Active Substance: CAPSAICIN
     Indication: Nutritional supplementation
     Dosage: QD, STARTED FROM LAST YEAR AND STOPPED 1 MONTH AGO
     Route: 048

REACTIONS (7)
  - Injection site pain [Not Recovered/Not Resolved]
  - Wrong device used [Unknown]
  - Wrong technique in device usage process [Unknown]
  - Multiple use of single-use product [Unknown]
  - Wrong technique in product usage process [Unknown]
  - Device breakage [Unknown]
  - Device issue [Unknown]
